FAERS Safety Report 13651254 (Version 1)
Quarter: 2017Q2

REPORT INFORMATION
  Report Type: Spontaneous
  Country: US (occurrence: US)
  Receive Date: 20170614
  Receipt Date: 20170614
  Transmission Date: 20170830
  Serious: Yes (Hospitalization)
  Sender: FDA-Public Use
  Company Number: US-GLAXOSMITHKLINE-US2017089469

PATIENT
  Age: 91 Year
  Sex: Male

DRUGS (15)
  1. COMBIVENT RESPIMAT [Concomitant]
     Active Substance: ALBUTEROL SULFATE\IPRATROPIUM BROMIDE
  2. LATANOPROST EYE DROPS [Concomitant]
     Active Substance: LATANOPROST
  3. OMEPRAZOLE. [Concomitant]
     Active Substance: OMEPRAZOLE
  4. HYDROCHLOROTHIAZIDE. [Concomitant]
     Active Substance: HYDROCHLOROTHIAZIDE
  5. ADVAIR DISKUS [Suspect]
     Active Substance: FLUTICASONE PROPIONATE\SALMETEROL XINAFOATE
     Indication: DYSPNOEA
     Dosage: 1 PUFF(S), BID
     Route: 055
     Dates: start: 2012
  6. DULCOLAX (BISACODYL) [Concomitant]
     Active Substance: BISACODYL
  7. NATEGLINIDE. [Concomitant]
     Active Substance: NATEGLINIDE
  8. VITAMIN D (CALCIFEDIOL) [Concomitant]
  9. ADVAIR DISKUS [Suspect]
     Active Substance: FLUTICASONE PROPIONATE\SALMETEROL XINAFOATE
     Indication: CARDIAC FAILURE CONGESTIVE
  10. CARVEDILOL. [Concomitant]
     Active Substance: CARVEDILOL
  11. GLIMEPIRIDE. [Concomitant]
     Active Substance: GLIMEPIRIDE
  12. ASPIRIN. [Concomitant]
     Active Substance: ASPIRIN
  13. ALBUTEROL. [Concomitant]
     Active Substance: ALBUTEROL
  14. FLUTICASONE PROPIONATE. [Concomitant]
     Active Substance: FLUTICASONE PROPIONATE
  15. MUCINEX [Concomitant]
     Active Substance: GUAIFENESIN

REACTIONS (4)
  - Drug dose omission [Unknown]
  - Blood glucose increased [Recovering/Resolving]
  - Product use in unapproved indication [Unknown]
  - Extra dose administered [Recovered/Resolved]

NARRATIVE: CASE EVENT DATE: 201704
